FAERS Safety Report 21069150 (Version 2)
Quarter: 2024Q3

REPORT INFORMATION
  Report Type: Spontaneous
  Country: US (occurrence: US)
  Receive Date: 20220712
  Receipt Date: 20240722
  Transmission Date: 20241017
  Serious: No
  Sender: ASTELLAS
  Company Number: US-ASTELLAS-2021US043205

PATIENT
  Sex: Male

DRUGS (1)
  1. MYRBETRIQ [Suspect]
     Active Substance: MIRABEGRON
     Indication: Product used for unknown indication
     Dosage: UNK, UNKNOWN FREQ.
     Route: 065

REACTIONS (7)
  - Lymphadenopathy [Unknown]
  - Palpitations [Unknown]
  - Abdominal pain upper [Unknown]
  - Headache [Unknown]
  - Pruritus [Unknown]
  - Vision blurred [Unknown]
  - Constipation [Unknown]
